FAERS Safety Report 4397964-1 (Version None)
Quarter: 2004Q3

REPORT INFORMATION
  Report Type: 
  Country: None (occurrence: None)
  Receive Date: 20040713
  Receipt Date: 20040630
  Transmission Date: 20050211
  Serious: Yes (Hospitalization, Other)
  Sender: FDA-Public Use
  Company Number: HQWYE845201JUL04

PATIENT
  Age: 19 Year
  Sex: Female
  Weight: 55 kg

DRUGS (15)
  1. RAPAMUNE [Suspect]
  2. RAPAMUNE [Suspect]
  3. PREDNISONE TAB [Concomitant]
  4. TACROLIMUS (TACROLIMUS) [Concomitant]
  5. CALCIUM CARBONATE (CALCIUM CARBONATE) [Concomitant]
  6. CALCITRIOL [Concomitant]
  7. NIFEDIPINE [Concomitant]
  8. RANITIDINE [Concomitant]
  9. ZYRTEC [Concomitant]
  10. MONTELUKAST (MONTELUKAST) [Concomitant]
  11. FLUTICASONE PROPIONATE [Concomitant]
  12. BACTRIM [Concomitant]
  13. VALGANCICLOVIR (VALGANCICLOVIR) [Concomitant]
  14. K-PHOS (POTASSIUM PHOSPHATE MONOBASIC) [Concomitant]
  15. ALBUTEROL [Concomitant]

REACTIONS (9)
  - BLADDER MASS [None]
  - DYSURIA [None]
  - GASTROINTESTINAL PAIN [None]
  - HAEMATURIA [None]
  - INFECTION [None]
  - INFLAMMATION LOCALISED [None]
  - KIDNEY TRANSPLANT REJECTION [None]
  - TUMOUR HAEMORRHAGE [None]
  - URINARY RETENTION [None]
